FAERS Safety Report 19546335 (Version 1)
Quarter: 2021Q3

REPORT INFORMATION
  Report Type: Spontaneous
  Country: CA (occurrence: CA)
  Receive Date: 20210713
  Receipt Date: 20210713
  Transmission Date: 20211014
  Serious: Yes (Other)
  Sender: FDA-Public Use
  Company Number: CA-BAYER-2021-173861

PATIENT

DRUGS (1)
  1. GADOVIST [Suspect]
     Active Substance: GADOBUTROL
     Indication: MAGNETIC RESONANCE IMAGING
     Dosage: UNK UNK, ONCE

REACTIONS (7)
  - Bone pain [None]
  - Muscle contractions involuntary [None]
  - Visual impairment [None]
  - Feeling abnormal [None]
  - Fatigue [None]
  - Muscular weakness [None]
  - Anxiety [None]
